FAERS Safety Report 7401589-0 (Version None)
Quarter: 2011Q2

REPORT INFORMATION
  Report Type: 
  Country: None (occurrence: None)
  Receive Date: 20110408
  Receipt Date: 20110330
  Transmission Date: 20111010
  Serious: No
  Sender: FDA-Public Use
  Company Number: US-BIOGENIDEC-2010BI026929

PATIENT
  Age: 47 Year
  Sex: Female

DRUGS (6)
  1. TYSABRI [Suspect]
     Indication: MULTIPLE SCLEROSIS
     Route: 042
     Dates: start: 20100723
  2. AVONEX [Concomitant]
     Route: 030
     Dates: start: 20010118, end: 20010701
  3. BENADRYL [Concomitant]
     Indication: PREMEDICATION
  4. AVONEX [Concomitant]
     Route: 030
     Dates: start: 20091001
  5. AVONEX [Concomitant]
     Route: 030
     Dates: start: 20080801
  6. ACETAMINOPHEN [Concomitant]
     Indication: PREMEDICATION

REACTIONS (5)
  - DIARRHOEA [None]
  - ABDOMINAL PAIN UPPER [None]
  - FATIGUE [None]
  - ARTHRALGIA [None]
  - HEADACHE [None]
